FAERS Safety Report 22628175 (Version 1)
Quarter: 2023Q2

REPORT INFORMATION
  Report Type: Spontaneous
  Country: US (occurrence: US)
  Receive Date: 20230622
  Receipt Date: 20230622
  Transmission Date: 20230722
  Serious: No
  Sender: FDA-Public Use
  Company Number: US-STERISCIENCE B.V.-2023-ST-000115

PATIENT

DRUGS (3)
  1. MIDAZOLAM [Interacting]
     Active Substance: MIDAZOLAM
     Indication: Sedation
     Dosage: INFUSION
     Route: 042
  2. MIDAZOLAM [Interacting]
     Active Substance: MIDAZOLAM
     Dosage: INCREASED TO GREATER THAN 0.1 MG/KG/H
     Route: 065
  3. TOCILIZUMAB [Interacting]
     Active Substance: TOCILIZUMAB
     Indication: COVID-19
     Dosage: 720 MILLIGRAM
     Route: 065

REACTIONS (1)
  - Drug interaction [Unknown]
